FAERS Safety Report 8391279-2 (Version None)
Quarter: 2012Q2

REPORT INFORMATION
  Report Type: 
  Country: None (occurrence: None)
  Receive Date: 20120521
  Receipt Date: 20120509
  Transmission Date: 20120825
  Serious: Yes (Other)
  Sender: FDA-Public Use
  Company Number: GB-1192084

PATIENT
  Age: 63 Year
  Sex: Male

DRUGS (2)
  1. COMBIGAN [Suspect]
     Dosage: (OPHTHALMIC)
     Route: 047
     Dates: start: 20120417, end: 20120423
  2. AZOPT [Suspect]
     Dosage: (OPHTHALMIC)
     Route: 047
     Dates: start: 20120417, end: 20120423

REACTIONS (3)
  - ERYTHEMA [None]
  - LOCALISED OEDEMA [None]
  - PAIN [None]
